FAERS Safety Report 6502860-7 (Version None)
Quarter: 2009Q4

REPORT INFORMATION
  Report Type: 
  Country: None (occurrence: None)
  Receive Date: 20091217
  Receipt Date: 20091207
  Transmission Date: 20100525
  Serious: Yes (Other)
  Sender: FDA-Public Use
  Company Number: DE-NAPPMUNDI-DEU-2009-0005753

PATIENT
  Age: 73 Year
  Sex: Female
  Weight: 54 kg

DRUGS (6)
  1. MST 10 MG MUNDIPHARMA [Suspect]
     Indication: DRUG USE FOR UNKNOWN INDICATION
     Dosage: 20 MG, TID
     Route: 048
     Dates: end: 20070721
  2. AGARICUS COMP/PHOS [Concomitant]
  3. COLCHICUM, TUBER, ETHANOL, DIGESTIO D3 FLUESSIGE VERDUENNUNG [Concomitant]
  4. NOVALGIN                           /00169801/ [Concomitant]
  5. TRAMAL                             /00599202/ [Concomitant]
  6. ZINCUM VALERIANICUM COMP [Concomitant]

REACTIONS (3)
  - DRUG WITHDRAWAL SYNDROME [None]
  - PARAESTHESIA [None]
  - RESTLESS LEGS SYNDROME [None]
